FAERS Safety Report 17691191 (Version 1)
Quarter: 2020Q2

REPORT INFORMATION
  Report Type: Spontaneous
  Country: NO (occurrence: NO)
  Receive Date: 20200422
  Receipt Date: 20200422
  Transmission Date: 20200714
  Serious: No
  Sender: FDA-Public Use
  Company Number: NO-LUPIN PHARMACEUTICALS INC.-2019-08143

PATIENT
  Age: 7 Year
  Sex: Male

DRUGS (3)
  1. METHYLPHENIDATE HYDROCHLORIDE. [Suspect]
     Active Substance: METHYLPHENIDATE HYDROCHLORIDE
     Indication: ATTENTION DEFICIT HYPERACTIVITY DISORDER
     Dosage: UNK UNK, TID (IMMEDIATE RELEASE TABLETS ALONG WITH CAPSULE CONTAING MODERATE DOSE: 0.5 MG/KG, UP TO
     Route: 065
  2. METHYLPHENIDATE HYDROCHLORIDE. [Suspect]
     Active Substance: METHYLPHENIDATE HYDROCHLORIDE
     Dosage: UNK UNK, TID (IMMEDIATE RELEASE TABLETS ALONG WITH CAPSULE CONTAING MODERATE DOSE: 1 MG/KG, UP TO MA
     Route: 065
  3. METHYLPHENIDATE HYDROCHLORIDE. [Suspect]
     Active Substance: METHYLPHENIDATE HYDROCHLORIDE
     Dosage: UNK UNK, QD (0.5 MG ONCE DAILY IN MORNING)
     Route: 065

REACTIONS (2)
  - Somnolence [Unknown]
  - Decreased appetite [Unknown]
